FAERS Safety Report 6282270-0 (Version None)
Quarter: 2009Q3

REPORT INFORMATION
  Report Type: 
  Country: None (occurrence: None)
  Receive Date: 20090724
  Receipt Date: 20090722
  Transmission Date: 20100115
  Serious: Yes (Life-Threatening)
  Sender: FDA-Public Use
  Company Number: JP-AVENTIS-200912047JP

PATIENT
  Age: 43 Year
  Sex: Female
  Weight: 45 kg

DRUGS (4)
  1. ENOXAPARIN SODIUM [Suspect]
     Route: 058
     Dates: start: 20090626, end: 20090629
  2. PENTCILIN [Concomitant]
     Indication: INFECTION PROPHYLAXIS
     Route: 051
     Dates: start: 20090625, end: 20090626
  3. SOLETON [Concomitant]
     Indication: PAIN MANAGEMENT
     Route: 048
     Dates: start: 20090629, end: 20090703
  4. PURSENNID                          /00571901/ [Concomitant]
     Indication: CONSTIPATION
     Route: 048
     Dates: start: 20090629, end: 20090705

REACTIONS (1)
  - HAEMOGLOBIN DECREASED [None]
